FAERS Safety Report 12010978 (Version 8)
Quarter: 2019Q1

REPORT INFORMATION
  Report Type: Report from Study
  Country: US (occurrence: US)
  Receive Date: 20160205
  Receipt Date: 20190308
  Transmission Date: 20190417
  Serious: Yes (Hospitalization)
  Sender: FDA-Public Use
  Company Number: US-ACTELION-A-NJ2016-130885

PATIENT
  Age: 28 Year
  Sex: Male

DRUGS (4)
  1. ADCIRCA [Concomitant]
     Active Substance: TADALAFIL
     Dosage: 40 MG, QD
     Dates: start: 2011
  2. REMODULIN [Concomitant]
     Active Substance: TREPROSTINIL
     Dosage: 96.4 NG/KG, PER MIN
     Route: 058
     Dates: start: 2006
  3. OPSUMIT [Suspect]
     Active Substance: MACITENTAN
     Indication: PULMONARY ARTERIAL HYPERTENSION
     Dosage: 10 MG, QD
     Route: 048
     Dates: start: 20150822
  4. COUMADIN [Concomitant]
     Active Substance: WARFARIN SODIUM

REACTIONS (17)
  - Diarrhoea [Recovered/Resolved]
  - Arrhythmia [Unknown]
  - Supraventricular tachycardia [Unknown]
  - Pyrexia [Recovered/Resolved]
  - Hospitalisation [Unknown]
  - Faeces discoloured [Recovered/Resolved]
  - Device issue [Unknown]
  - Cough [Not Recovered/Not Resolved]
  - Myalgia [Recovered/Resolved]
  - Cardiac disorder [Unknown]
  - Nasopharyngitis [Not Recovered/Not Resolved]
  - Ventricular extrasystoles [Unknown]
  - Gastroenteritis viral [Recovered/Resolved]
  - Dehydration [Recovered/Resolved]
  - Rhinorrhoea [Not Recovered/Not Resolved]
  - Catheter site erythema [Unknown]
  - Catheter site inflammation [Unknown]

NARRATIVE: CASE EVENT DATE: 20160104
